FAERS Safety Report 7829936-6 (Version None)
Quarter: 2011Q4

REPORT INFORMATION
  Report Type: 
  Country: None (occurrence: None)
  Receive Date: 20111021
  Receipt Date: 20110929
  Transmission Date: 20120403
  Serious: Yes (Hospitalization)
  Sender: FDA-Public Use
  Company Number: US-BAYER-2011-004796

PATIENT
  Age: 46 Year
  Sex: Female
  Weight: 95.5 kg

DRUGS (18)
  1. LISINOPRIL [Concomitant]
     Dosage: 40 MG, UNK
     Route: 048
     Dates: start: 20080118, end: 20090721
  2. CYCLOBENZAPRINE [Concomitant]
     Dosage: 10 MG, UNK
     Route: 048
     Dates: start: 20090422
  3. PROPOXYPHENE NAPSYLATE W/ ACETAMINOPHEN [Concomitant]
     Dosage: UNK
     Route: 048
     Dates: start: 20090504
  4. ASPIRIN [Concomitant]
     Dosage: 81 MG, QD
     Route: 048
  5. PROMETHAZINE [Concomitant]
     Dosage: 25 MG, UNK
     Route: 048
     Dates: start: 20090422
  6. PANTOPRAZOLE [Concomitant]
     Dosage: 40 MG, UNK
     Route: 048
     Dates: start: 20090414, end: 20090721
  7. APAP W/ CODEINE [Concomitant]
     Dosage: UNK
     Route: 048
     Dates: start: 20090422
  8. METOPROLOL TARTRATE [Concomitant]
  9. ZOCOR [Concomitant]
  10. DROSPIRENONE AND ETHINYL ESTRADIOL [Suspect]
     Indication: CONTRACEPTION
     Dosage: UNK
     Route: 048
     Dates: start: 20020101, end: 20090701
  11. YASMIN [Suspect]
     Indication: CONTRACEPTION
     Dosage: UNK
     Route: 048
     Dates: start: 20020101, end: 20090701
  12. PLAVIX [Concomitant]
     Dosage: 75 MG, QD
     Route: 048
  13. SIMVASTATIN [Concomitant]
     Dosage: 20 MG, ONCE
     Route: 048
  14. LISINOPRIL [Concomitant]
  15. HYDROCHLOROTHIAZIDE [Concomitant]
     Dosage: 25 MG, UNK
     Route: 048
     Dates: start: 20080110, end: 20090721
  16. CLINDAMYCIN [Concomitant]
     Dosage: 150 MG, UNK
     Route: 048
     Dates: start: 20090504
  17. PHENTERMINE [Concomitant]
     Dosage: 37.5 MG, QOD
     Route: 048
  18. METOPROLOL TARTRATE [Concomitant]
     Dosage: 25 MG, BID
     Route: 048

REACTIONS (5)
  - CORONARY ARTERY DISEASE [None]
  - MYOCARDIAL INFARCTION [None]
  - INJURY [None]
  - EMOTIONAL DISTRESS [None]
  - PAIN [None]
